FAERS Safety Report 4824759-4 (Version None)
Quarter: 2005Q4

REPORT INFORMATION
  Report Type: 
  Country: None (occurrence: None)
  Receive Date: 20051014
  Receipt Date: 20050810
  Transmission Date: 20060501
  Serious: No
  Sender: FDA-Public Use
  Company Number: 2005SP002311

PATIENT
  Age: 51 Year
  Sex: Female
  Weight: 58.9676 kg

DRUGS (3)
  1. LUNESTA [Suspect]
     Dosage: 3 MG;HS;ORAL, 3 MG;HS;ORAL
     Route: 048
     Dates: start: 20050623, end: 20050707
  2. LUNESTA [Suspect]
     Dosage: 3 MG;HS;ORAL, 3 MG;HS;ORAL
     Route: 048
     Dates: start: 20050721
  3. PREDNISONE [Suspect]
     Indication: ASTHMA
     Dates: start: 20050701

REACTIONS (3)
  - CONTUSION [None]
  - HAEMATEMESIS [None]
  - HAEMATOCHEZIA [None]
